FAERS Safety Report 9898257 (Version 2)
Quarter: 2014Q1

REPORT INFORMATION
  Report Type: Spontaneous
  Country: US (occurrence: US)
  Receive Date: 20140214
  Receipt Date: 20140214
  Transmission Date: 20141002
  Serious: No
  Sender: FDA-Public Use
  Company Number: US-GILEAD-2011-0041568

PATIENT
  Age: 56 Year
  Sex: Female

DRUGS (4)
  1. LETAIRIS [Suspect]
     Indication: PULMONARY HYPERTENSION
     Dosage: 5 MG, UNK
     Route: 048
     Dates: start: 201109
  2. LETAIRIS [Suspect]
     Indication: CONNECTIVE TISSUE DISORDER
     Dosage: 5 MG, UNK
     Route: 048
     Dates: start: 20110623, end: 20110630
  3. ADCIRCA [Concomitant]
  4. TYVASO [Concomitant]

REACTIONS (1)
  - Hepatic enzyme increased [Recovered/Resolved]
